FAERS Safety Report 12972490 (Version 1)
Quarter: 2016Q4

REPORT INFORMATION
  Report Type: Report from Study
  Country: KR (occurrence: KR)
  Receive Date: 20161124
  Receipt Date: 20161124
  Transmission Date: 20170207
  Serious: No
  Sender: FDA-Public Use
  Company Number: KR-PROSTRAKAN-2016-KR-0280

PATIENT

DRUGS (14)
  1. FEROBA [Concomitant]
     Active Substance: FERROUS SULFATE\PROTEASE
     Indication: ANAEMIA PROPHYLAXIS
     Dosage: UNKNOWN
     Route: 065
     Dates: start: 20130212, end: 20130215
  2. ASEC [Concomitant]
     Indication: ANAEMIA PROPHYLAXIS
     Dosage: UNKNOWN
     Route: 065
     Dates: start: 20130216, end: 20130225
  3. MAG-O [Concomitant]
     Indication: CONSTIPATION PROPHYLAXIS
     Dosage: UNKNOWN
     Route: 065
     Dates: start: 20130216, end: 20130225
  4. DEXAMETHASONE. [Concomitant]
     Active Substance: DEXAMETHASONE
     Indication: PROPHYLAXIS
     Dosage: UNKNOWN
     Route: 065
     Dates: start: 20130212, end: 20130213
  5. GASTER [Concomitant]
     Active Substance: FAMOTIDINE
     Indication: PROPHYLAXIS
     Dosage: UNKNOWN
     Route: 065
     Dates: start: 20130213, end: 20130213
  6. ERDOIN [Concomitant]
     Indication: PROPHYLAXIS
     Route: 065
     Dates: start: 20130212, end: 20130215
  7. PHAZYME [Concomitant]
     Active Substance: DIMETHICONE 410
     Indication: PROPHYLAXIS
     Dosage: UNKNOWN
     Route: 065
     Dates: start: 20130309, end: 201303
  8. CHLORPHENIRAMINE MALEATE. [Concomitant]
     Active Substance: CHLORPHENIRAMINE MALEATE
     Indication: PROPHYLAXIS
     Dosage: UNKNOWN
     Route: 065
     Dates: start: 20130213, end: 20130213
  9. PADEXOL [Concomitant]
     Indication: PRODUCT USED FOR UNKNOWN INDICATION
     Dosage: UNKNOWN
     Route: 065
     Dates: start: 20130213, end: 20130213
  10. MOTILITONE [Concomitant]
     Active Substance: HERBALS
     Indication: PROPHYLAXIS
     Dosage: UNKNOWN
     Route: 065
     Dates: start: 20130212, end: 20130215
  11. NEOPLATIN [Concomitant]
     Active Substance: CISPLATIN
     Indication: PRODUCT USED FOR UNKNOWN INDICATION
     Dosage: UNKNOWN
     Route: 065
     Dates: start: 20130213, end: 20130213
  12. STILLEN [Concomitant]
     Indication: PROPHYLAXIS
     Dosage: UNKNOWN
     Route: 065
     Dates: start: 20130212, end: 20130215
  13. SOLETON [Concomitant]
     Active Substance: ZALTOPROFEN
     Indication: CANCER PAIN
     Route: 065
     Dates: start: 20130212, end: 20130215
  14. GRANISETRON [Suspect]
     Active Substance: GRANISETRON
     Indication: PROPHYLAXIS OF NAUSEA AND VOMITING
     Dosage: UNKNOWN
     Route: 062
     Dates: start: 20130212, end: 20130216

REACTIONS (1)
  - Nausea [Recovering/Resolving]

NARRATIVE: CASE EVENT DATE: 20130216
